FAERS Safety Report 8262006-4 (Version None)
Quarter: 2012Q2

REPORT INFORMATION
  Report Type: 
  Country: None (occurrence: None)
  Receive Date: 20120402
  Receipt Date: 20120323
  Transmission Date: 20120825
  Serious: Yes (Hospitalization)
  Sender: FDA-Public Use
  Company Number: 2012SP016247

PATIENT
  Age: 66 Year
  Sex: Female

DRUGS (2)
  1. ZOLPIDEM TARTRATE [Suspect]
     Indication: PRODUCT USED FOR UNKNOWN INDICATION
     Dosage: 10 MG; ONCE;PO
     Route: 048
     Dates: start: 20110328, end: 20110328
  2. REMERON [Suspect]
     Indication: PRODUCT USED FOR UNKNOWN INDICATION
     Dosage: 30 MG; ONCE;PO
     Route: 048
     Dates: start: 20110328, end: 20110328

REACTIONS (6)
  - OVERDOSE [None]
  - SOMNOLENCE [None]
  - AGITATION [None]
  - DELIRIUM [None]
  - BLOOD PRESSURE SYSTOLIC INCREASED [None]
  - TOXICITY TO VARIOUS AGENTS [None]
